FAERS Safety Report 4777970-5 (Version None)
Quarter: 2005Q3

REPORT INFORMATION
  Report Type: 
  Country: None (occurrence: None)
  Receive Date: 20050921
  Receipt Date: 20050912
  Transmission Date: 20060218
  Serious: Yes (Other)
  Sender: FDA-Public Use
  Company Number: 12300

PATIENT
  Age: 73 Year
  Sex: Female

DRUGS (7)
  1. METHOTREXATE [Suspect]
     Indication: RHEUMATOID ARTHRITIS
     Dosage: 7.5 MG WEEKLY PO
     Route: 048
  2. LANSOPRAZOLE [Concomitant]
  3. AMITRIPTYLINE HCL [Concomitant]
  4. CELECOXIB [Concomitant]
  5. THYROXINE [Concomitant]
  6. OXYBUTYNIN [Concomitant]
  7. CO-PROXAMOL  /00016701 [Concomitant]

REACTIONS (3)
  - CARDIAC FAILURE [None]
  - PANCYTOPENIA [None]
  - PNEUMONIA [None]
